FAERS Safety Report 15192346 (Version 1)
Quarter: 2018Q3

REPORT INFORMATION
  Report Type: Report from Study
  Country: US (occurrence: US)
  Receive Date: 20180724
  Receipt Date: 20180724
  Transmission Date: 20181010
  Serious: Yes (Hospitalization)
  Sender: FDA-Public Use
  Company Number: US-BRISTOL-MYERS SQUIBB COMPANY-BMS-2018-068993

PATIENT
  Age: 60 Year
  Sex: Female
  Weight: 78.46 kg

DRUGS (21)
  1. NIVOLUMAB [Suspect]
     Active Substance: NIVOLUMAB
     Indication: NON-SMALL CELL LUNG CANCER
     Dosage: 360 MG, UNK
     Route: 042
     Dates: start: 20171027
  2. COMPAZINE                          /00013302/ [Concomitant]
     Active Substance: PROCHLORPERAZINE EDISYLATE
     Indication: PROPHYLAXIS OF NAUSEA AND VOMITING
     Dosage: UNK, Q6H
     Route: 048
     Dates: start: 20171025
  3. COZAAR [Concomitant]
     Active Substance: LOSARTAN POTASSIUM
     Indication: HYPERTENSION
     Dosage: 50 MG, QD
     Route: 048
     Dates: start: 20150428
  4. ONDANSETRON [Concomitant]
     Active Substance: ONDANSETRON
     Indication: VOMITING
     Route: 065
  5. SENOKOT [Concomitant]
     Active Substance: SENNOSIDES
     Indication: CONSTIPATION
     Route: 065
  6. BUPIVACAINE. [Concomitant]
     Active Substance: BUPIVACAINE
     Indication: BACK PAIN
     Dosage: 3.8 MG, QD
     Route: 050
     Dates: start: 20171205
  7. ATIVAN [Concomitant]
     Active Substance: LORAZEPAM
     Indication: ANXIETY
     Dosage: 0.5 MG, PRN
     Route: 042
     Dates: start: 20171127
  8. VELIPARIB [Suspect]
     Active Substance: VELIPARIB
     Indication: NON-SMALL CELL LUNG CANCER
     Dosage: 200 MG, BID
     Route: 048
     Dates: start: 20171025
  9. DILAUDID [Concomitant]
     Active Substance: HYDROMORPHONE HYDROCHLORIDE
     Indication: BACK PAIN
     Dosage: 1.9 MG, QD
     Route: 050
     Dates: start: 20171205
  10. KEFLEX [Concomitant]
     Active Substance: CEPHALEXIN
     Indication: INFECTION PROPHYLAXIS
     Dosage: 500 MG, Q6H
     Route: 048
     Dates: start: 20171205
  11. ZOCOR [Concomitant]
     Active Substance: SIMVASTATIN
     Indication: HYPERLIPIDAEMIA
     Dosage: 40 MG, QD
     Route: 048
     Dates: start: 201504
  12. SYNTHROID [Concomitant]
     Active Substance: LEVOTHYROXINE SODIUM
     Indication: HYPOTHYROIDISM
     Dosage: 75 ?G, QD
     Route: 048
     Dates: start: 20150428
  13. ONDANSETRON [Concomitant]
     Active Substance: ONDANSETRON
     Indication: NAUSEA
     Dosage: 8 MG, Q8H
     Route: 048
     Dates: start: 20171025
  14. CARBOPLATIN. [Suspect]
     Active Substance: CARBOPLATIN
     Indication: NON-SMALL CELL LUNG CANCER
     Dosage: UNK
     Route: 042
     Dates: start: 20171027
  15. REGLAN [Concomitant]
     Active Substance: METOCLOPRAMIDE HYDROCHLORIDE
     Indication: PROPHYLAXIS OF NAUSEA AND VOMITING
     Route: 065
  16. MIRALAX [Concomitant]
     Active Substance: POLYETHYLENE GLYCOL 3350
     Indication: CONSTIPATION
     Route: 048
  17. BUPIVACAINE. [Concomitant]
     Active Substance: BUPIVACAINE
     Indication: PAIN
     Route: 065
  18. REGLAN [Concomitant]
     Active Substance: METOCLOPRAMIDE HYDROCHLORIDE
     Indication: NAUSEA
     Dosage: 5 MG, Q6H
     Route: 048
     Dates: start: 20171228
  19. SENOKOT [Concomitant]
     Active Substance: SENNOSIDES
     Indication: PAIN
     Route: 048
  20. PEMETREXED DISODIUM [Suspect]
     Active Substance: PEMETREXED DISODIUM
     Indication: NON-SMALL CELL LUNG CANCER
     Dosage: 493 MG/M2, UNK
     Route: 042
     Dates: start: 20171027
  21. DILAUDID [Concomitant]
     Active Substance: HYDROMORPHONE HYDROCHLORIDE
     Indication: PAIN
     Route: 065

REACTIONS (3)
  - Dyspnoea [Not Recovered/Not Resolved]
  - Fatigue [Not Recovered/Not Resolved]
  - Confusional state [Not Recovered/Not Resolved]

NARRATIVE: CASE EVENT DATE: 20180707
